FAERS Safety Report 6637777-0 (Version None)
Quarter: 2010Q1

REPORT INFORMATION
  Report Type: 
  Country: None (occurrence: None)
  Receive Date: 20100315
  Receipt Date: 20100315
  Transmission Date: 20100710
  Serious: No
  Sender: FDA-Public Use
  Company Number: None

PATIENT
  Age: 75 Year
  Sex: Male
  Weight: 119.29 kg

DRUGS (1)
  1. PIPERACILLIN AND TAZOBACTAM [Suspect]
     Indication: PNEUMONIA
     Dosage: 3.375 GM TID IV
     Route: 042
     Dates: start: 20100309, end: 20100310

REACTIONS (3)
  - CONFUSIONAL STATE [None]
  - PYREXIA [None]
  - RASH [None]
